FAERS Safety Report 9409472 (Version 1)
Quarter: 2013Q3

REPORT INFORMATION
  Report Type: Spontaneous
  Country: US (occurrence: US)
  Receive Date: 20130719
  Receipt Date: 20130719
  Transmission Date: 20140515
  Serious: Yes (Other)
  Sender: FDA-Public Use
  Company Number: US-BAYER-2013-085227

PATIENT
  Age: 45 Year
  Sex: Female

DRUGS (1)
  1. YASMIN [Suspect]
     Indication: DYSMENORRHOEA

REACTIONS (2)
  - Phlebitis superficial [None]
  - Thrombophlebitis superficial [None]
